FAERS Safety Report 12764500 (Version 1)
Quarter: 2016Q3

REPORT INFORMATION
  Report Type: Spontaneous
  Country: FR (occurrence: FR)
  Receive Date: 20160920
  Receipt Date: 20160920
  Transmission Date: 20161109
  Serious: Yes (Other)
  Sender: FDA-Public Use
  Company Number: FR-BAXALTA-2016BLT006622

PATIENT
  Age: 14 Year
  Sex: Male

DRUGS (2)
  1. ADVATE [Suspect]
     Active Substance: ANTIHEMOPHILIC FACTOR, HUMAN RECOMBINANT
     Indication: FACTOR VIII DEFICIENCY
     Dosage: 1500-2000 IU, 2 INJECTIONS/WEEK
     Route: 065
     Dates: start: 200801
  2. ADVATE [Suspect]
     Active Substance: ANTIHEMOPHILIC FACTOR, HUMAN RECOMBINANT
     Dosage: 2000 IU, EVERY 2 DY
     Route: 065

REACTIONS (2)
  - Haemarthrosis [Unknown]
  - Venous injury [Unknown]
